FAERS Safety Report 26023150 (Version 2)
Quarter: 2025Q4

REPORT INFORMATION
  Report Type: Spontaneous
  Country: EU (occurrence: EU)
  Receive Date: 20251110
  Receipt Date: 20251210
  Transmission Date: 20260118
  Serious: No
  Sender: BRISTOL-MYERS SQUIBB COMPANY
  Company Number: EU-BRISTOL-MYERS SQUIBB COMPANY-2025-152112

PATIENT
  Age: 59 Year
  Sex: Male
  Weight: 65.3 kg

DRUGS (13)
  1. NULOJIX [Suspect]
     Active Substance: BELATACEPT
     Indication: Renal transplant
     Dates: start: 202201
  2. CELLCEPT [Concomitant]
     Active Substance: MYCOPHENOLATE MOFETIL
     Indication: Renal transplant
     Route: 048
  3. CELLCEPT [Concomitant]
     Active Substance: MYCOPHENOLATE MOFETIL
     Dosage: 500 MG IN THE MORNING AND 250 MG IN THE EVENING; BATCHES AND BATCHES NOT HELD, PROVIDED BY PHARMACY
  4. PREDNISONE [Concomitant]
     Active Substance: PREDNISONE
     Indication: Renal transplant
     Dosage: IN THE MORNING, BATCHES AND BATCHES NOT HELD, PROVIDED BY PHARMACY
     Route: 048
     Dates: start: 202201
  5. KARDEGIC [Concomitant]
     Active Substance: ASPIRIN DL-LYSINE
     Indication: Coronary arterial stent insertion
     Dosage: AT MIDDAY, BATCHES AND BATCHES NOT HELD, PROVIDED BY PHARMACY
     Route: 048
     Dates: start: 202201
  6. CRESTOR [Concomitant]
     Active Substance: ROSUVASTATIN CALCIUM
     Indication: Coronary arterial stent insertion
     Dosage: IN THE EVENING, BATCHES AND BATCHES NOT HELD, PROVIDED BY PHARMACY
     Route: 048
     Dates: start: 202201
  7. EZETIMIBE [Concomitant]
     Active Substance: EZETIMIBE
     Indication: Coronary arterial stent insertion
     Dosage: BATCHES AND BATCHES NOT HELD, PROVIDED BY PHARMACY
     Route: 048
     Dates: start: 202201
  8. NEBIVOLOL [Concomitant]
     Active Substance: NEBIVOLOL
     Indication: Coronary arterial stent insertion
     Dosage: MORNING
     Route: 048
  9. NEBIVOLOL [Concomitant]
     Active Substance: NEBIVOLOL
     Dosage: BATCHES AND BATCHES NOT HELD, PROVIDED BY PHARMACY
     Dates: start: 202201
  10. LUMIGAN [Concomitant]
     Active Substance: BIMATOPROST
     Indication: Glaucoma
     Dosage: 1 DROP IN THE EVENING IN BOTH EYES. BATCHES AND BATCHES NOT HELD, PROVIDED BY PHARMACY
  11. IRBESARTAN [Concomitant]
     Active Substance: IRBESARTAN
     Indication: Coronary arterial stent insertion
     Dosage: BATCHES AND BATCHES NOT HELD, PROVIDED BY PHARMACY
     Route: 048
     Dates: start: 202201
  12. LANSOPRAZOLE [Concomitant]
     Active Substance: LANSOPRAZOLE
     Indication: Oesophagitis
     Dosage: IN THE EVENING; BATCHES AND BATCHES NOT HELD, PROVIDED BY PHARMACY
     Route: 048
     Dates: start: 202201
  13. PROBIOTICS NOS [Concomitant]
     Active Substance: PROBIOTICS NOS
     Indication: Product used for unknown indication
     Dosage: D 80,000
     Dates: start: 202201

REACTIONS (5)
  - Bladder hypertrophy [Unknown]
  - Off label use [Unknown]
  - Anxiety [Unknown]
  - Pain [Unknown]
  - Injection site discomfort [Unknown]

NARRATIVE: CASE EVENT DATE: 20251106
